FAERS Safety Report 5258949-6 (Version None)
Quarter: 2007Q1

REPORT INFORMATION
  Report Type: 
  Country: None (occurrence: None)
  Receive Date: 20070308
  Receipt Date: 20070222
  Transmission Date: 20070707
  Serious: Yes (Hospitalization)
  Sender: FDA-Public Use
  Company Number: US-AMGEN-STX212444

PATIENT
  Sex: Male

DRUGS (2)
  1. ENBREL [Suspect]
     Indication: PSORIASIS
     Route: 058
     Dates: start: 20040601
  2. ENBREL [Suspect]
     Indication: PSORIATIC ARTHROPATHY

REACTIONS (7)
  - ARTERIAL REPAIR [None]
  - BLINDNESS [None]
  - CEREBROVASCULAR ACCIDENT [None]
  - CORONARY ARTERY OCCLUSION [None]
  - MUSCULOSKELETAL STIFFNESS [None]
  - PAIN IN EXTREMITY [None]
  - PSORIASIS [None]
